FAERS Safety Report 9773276 (Version 1)
Quarter: 2013Q4

REPORT INFORMATION
  Report Type: Spontaneous
  Country: PT (occurrence: PT)
  Receive Date: 20131219
  Receipt Date: 20131219
  Transmission Date: 20140711
  Serious: Yes (Other)
  Sender: FDA-Public Use
  Company Number: PT-GLAXOSMITHKLINE-B0954141A

PATIENT
  Sex: Female

DRUGS (2)
  1. AVODART [Suspect]
     Indication: ALOPECIA
     Dosage: 2MG WEEKLY
     Route: 048
     Dates: start: 2011, end: 201311
  2. ALDACTONE [Suspect]
     Indication: PRODUCT USED FOR UNKNOWN INDICATION
     Route: 048
     Dates: end: 201311

REACTIONS (3)
  - Abortion spontaneous [Recovered/Resolved]
  - Off label use [Unknown]
  - Exposure during pregnancy [Unknown]
